FAERS Safety Report 15994545 (Version 1)
Quarter: 2019Q1

REPORT INFORMATION
  Report Type: Spontaneous
  Country: US (occurrence: US)
  Receive Date: 20190221
  Receipt Date: 20190221
  Transmission Date: 20190418
  Serious: Yes (Disabling)
  Sender: FDA-Public Use
  Company Number: None

PATIENT
  Age: 66 Year
  Sex: Female
  Weight: 76.5 kg

DRUGS (1)
  1. COPAXONE [Suspect]
     Active Substance: GLATIRAMER ACETATE
     Indication: MULTIPLE SCLEROSIS
     Dosage: ?          QUANTITY:1 INJECTION(S);OTHER FREQUENCY:3 TIMES WEEKLY;OTHER ROUTE:SUBCUTANEOUS INTO FAT?
     Dates: start: 20140601, end: 20170530

REACTIONS (5)
  - Malaise [None]
  - Muscle spasms [None]
  - Therapy change [None]
  - Pain [None]
  - Urinary tract infection [None]

NARRATIVE: CASE EVENT DATE: 20180601
